FAERS Safety Report 7640398-4 (Version None)
Quarter: 2011Q3

REPORT INFORMATION
  Report Type: 
  Country: None (occurrence: None)
  Receive Date: 20110728
  Receipt Date: 20110719
  Transmission Date: 20111222
  Serious: Yes (Hospitalization, Other)
  Sender: FDA-Public Use
  Company Number: US-BIOGENIDEC-2011BI016967

PATIENT
  Sex: Female

DRUGS (9)
  1. AMBIEN [Concomitant]
  2. GABAPENTIN [Concomitant]
     Route: 048
     Dates: start: 20060101
  3. AVONEX [Suspect]
     Indication: MULTIPLE SCLEROSIS
     Route: 030
     Dates: start: 20110119
  4. CLONAZEPAM [Concomitant]
  5. VICODIN [Concomitant]
  6. EFFEXOR [Concomitant]
  7. IMITREX [Concomitant]
  8. ATIVAN [Concomitant]
  9. ZANAFLEX [Concomitant]
     Route: 048

REACTIONS (5)
  - SPINAL FUSION SURGERY [None]
  - GAIT DISTURBANCE [None]
  - MULTIPLE SCLEROSIS [None]
  - CONVULSION [None]
  - RESTLESS LEGS SYNDROME [None]
